FAERS Safety Report 4312650-1 (Version None)
Quarter: 2004Q1

REPORT INFORMATION
  Report Type: 
  Country: None (occurrence: None)
  Receive Date: 20040305
  Receipt Date: 20040219
  Transmission Date: 20041129
  Serious: Yes (Death)
  Sender: FDA-Public Use
  Company Number: 2004S1000338

PATIENT
  Age: 59 Year
  Sex: Male

DRUGS (1)
  1. CLOZAPINE [Suspect]
     Dosage: 500MG/DAY, ORAL
     Route: 048
     Dates: start: 20010501

REACTIONS (1)
  - PHARMACEUTICAL PRODUCT COMPLAINT [None]
